FAERS Safety Report 4711988-3 (Version None)
Quarter: 2005Q3

REPORT INFORMATION
  Report Type: 
  Country: None (occurrence: None)
  Receive Date: 20050711
  Receipt Date: 20050711
  Transmission Date: 20060218
  Serious: Yes (Hospitalization)
  Sender: FDA-Public Use
  Company Number: None

PATIENT
  Sex: Male
  Weight: 80 kg

DRUGS (6)
  1. OXALIPLATIN [Suspect]
     Indication: HEPATIC NEOPLASM MALIGNANT
     Dosage: 130 MG/M2 HEPATIC ART INFUSION Q 21 D
     Dates: start: 20050630
  2. PROZAC [Concomitant]
  3. OLANZAPINE [Concomitant]
  4. TRAZADONE [Concomitant]
  5. ALDACTONE [Concomitant]
  6. LASIX [Concomitant]

REACTIONS (4)
  - HAEMATEMESIS [None]
  - HAEMORRHAGE [None]
  - NAUSEA [None]
  - VARICES OESOPHAGEAL [None]
